FAERS Safety Report 10284273 (Version 1)
Quarter: 2014Q3

REPORT INFORMATION
  Report Type: Spontaneous
  Country: US (occurrence: None)
  Receive Date: 20140703
  Receipt Date: 20140703
  Transmission Date: 20150326
  Serious: Yes (Other)
  Sender: FDA-Public Use
  Company Number: None

PATIENT
  Age: 45 Year
  Sex: Female
  Weight: 106.6 kg

DRUGS (1)
  1. SYMBICORT [Suspect]
     Active Substance: BUDESONIDE\FORMOTEROL FUMARATE DIHYDRATE
     Indication: ASTHMA
     Dosage: 1 PUFF TWICE DAILY INHALATION
     Route: 055
     Dates: start: 20140627, end: 20140701

REACTIONS (6)
  - Sleep disorder [None]
  - Dysphonia [None]
  - Swollen tongue [None]
  - Sinus congestion [None]
  - Throat tightness [None]
  - Throat irritation [None]

NARRATIVE: CASE EVENT DATE: 20140701
